FAERS Safety Report 23539163 (Version 1)
Quarter: 2024Q1

REPORT INFORMATION
  Report Type: Spontaneous
  Country: BE (occurrence: BE)
  Receive Date: 20240219
  Receipt Date: 20240219
  Transmission Date: 20240409
  Serious: Yes (Death, Hospitalization, Other)
  Sender: FDA-Public Use
  Company Number: BE-RDY-LIT/BEL/24/0003005

PATIENT
  Age: 53 Year
  Sex: Female

DRUGS (11)
  1. ACYCLOVIR [Suspect]
     Active Substance: ACYCLOVIR
     Indication: Herpes simplex
     Route: 048
  2. LETERMOVIR [Suspect]
     Active Substance: LETERMOVIR
     Indication: Cytomegalovirus infection
  3. SORAFENIB [Concomitant]
     Active Substance: SORAFENIB
  4. PIPERACILLIN [Concomitant]
     Active Substance: PIPERACILLIN
  5. VANCOMYCIN [Concomitant]
     Active Substance: VANCOMYCIN
  6. FLUCONAZOLE [Concomitant]
     Active Substance: FLUCONAZOLE
  7. TACROLIMUS [Concomitant]
     Active Substance: TACROLIMUS
  8. MYCOPHENOLATE MOFETIL [Concomitant]
     Active Substance: MYCOPHENOLATE MOFETIL
  9. LEVOTHYROXINE [Concomitant]
     Active Substance: LEVOTHYROXINE\LEVOTHYROXINE SODIUM
  10. PANTOPRAZOLE [Concomitant]
     Active Substance: PANTOPRAZOLE
  11. SERTRALINE [Concomitant]
     Active Substance: SERTRALINE HYDROCHLORIDE

REACTIONS (7)
  - Acute kidney injury [Fatal]
  - Hypoglycaemia [Fatal]
  - Haemoptysis [Fatal]
  - Hypoxic-ischaemic encephalopathy [Fatal]
  - New onset refractory status epilepticus [Fatal]
  - Mitral valve incompetence [Fatal]
  - Cardiac arrest [Fatal]
